FAERS Safety Report 11875303 (Version 1)
Quarter: 2015Q4

REPORT INFORMATION
  Report Type: Spontaneous
  Country: US (occurrence: None)
  Receive Date: 20151228
  Receipt Date: 20151228
  Transmission Date: 20160305
  Serious: Yes (Hospitalization)
  Sender: FDA-Public Use
  Company Number: None

PATIENT
  Age: 70 Year
  Sex: Male
  Weight: 83 kg

DRUGS (1)
  1. DIVALPROEX [Suspect]
     Active Substance: DIVALPROEX SODIUM
     Indication: SEIZURE
     Dates: start: 20151119, end: 20151222

REACTIONS (7)
  - Asterixis [None]
  - Confusional state [None]
  - Thrombocytopenia [None]
  - Somnolence [None]
  - Hyperammonaemia [None]
  - Ataxia [None]
  - Abnormal behaviour [None]

NARRATIVE: CASE EVENT DATE: 20151222
